FAERS Safety Report 25846402 (Version 2)
Quarter: 2025Q4

REPORT INFORMATION
  Report Type: Spontaneous
  Country: CH (occurrence: CH)
  Receive Date: 20250925
  Receipt Date: 20251104
  Transmission Date: 20260117
  Serious: Yes (Life-Threatening, Other)
  Sender: NOVARTIS
  Company Number: CH-002147023-NVSC2025CH144829

PATIENT
  Age: 16 Year
  Sex: Male

DRUGS (5)
  1. MEKINIST [Suspect]
     Active Substance: TRAMETINIB DIMETHYL SULFOXIDE
     Indication: Glioma
     Dosage: 1 MG, QD
     Route: 048
     Dates: start: 20250210
  2. MEKINIST [Suspect]
     Active Substance: TRAMETINIB DIMETHYL SULFOXIDE
     Indication: Neurofibromatosis
  3. OPDUALAG [Concomitant]
     Active Substance: NIVOLUMAB\RELATLIMAB-RMBW
     Indication: Product used for unknown indication
     Dosage: 4 MG/KG (3 MG/KG + 1 MG/KG)
     Route: 042
     Dates: start: 20241220, end: 20250226
  4. YERVOY [Concomitant]
     Active Substance: IPILIMUMAB
     Indication: Product used for unknown indication
     Dosage: 480 MG/160 MG, 4W
     Route: 042
     Dates: start: 20250618
  5. AVASTIN [Concomitant]
     Active Substance: BEVACIZUMAB
     Indication: Product used for unknown indication
     Dosage: 400 MG, Q3W
     Route: 042
     Dates: start: 20250420

REACTIONS (3)
  - Malignant neoplasm progression [Not Recovered/Not Resolved]
  - Glioma [Not Recovered/Not Resolved]
  - Off label use [Unknown]

NARRATIVE: CASE EVENT DATE: 20250313
